FAERS Safety Report 20039861 (Version 1)
Quarter: 2021Q4

REPORT INFORMATION
  Report Type: Spontaneous
  Country: FR (occurrence: FR)
  Receive Date: 20211106
  Receipt Date: 20211106
  Transmission Date: 20220303
  Serious: Yes (Other)
  Sender: FDA-Public Use
  Company Number: FR-AFSSAPS-AVNT20211455

PATIENT
  Age: 30 Year
  Sex: Female

DRUGS (1)
  1. OXYCODONE [Suspect]
     Active Substance: OXYCODONE
     Indication: Product used for unknown indication
     Dosage: AU MOINS 80 MG/PRISE, 5 FOIS/J
     Route: 048

REACTIONS (1)
  - Drug use disorder [Not Recovered/Not Resolved]
